FAERS Safety Report 17130388 (Version 1)
Quarter: 2019Q4

REPORT INFORMATION
  Report Type: Report from Study
  Country: CN (occurrence: CN)
  Receive Date: 20191209
  Receipt Date: 20191209
  Transmission Date: 20200122
  Serious: Yes (Other)
  Sender: FDA-Public Use
  Company Number: CN-ROCHE-2487163

PATIENT
  Sex: Female

DRUGS (3)
  1. TOPOTECAN [Suspect]
     Active Substance: TOPOTECAN HYDROCHLORIDE
     Indication: OVARIAN CANCER
     Dosage: ON DAYS 1ST, 8TH, AND 15TH OF 28 DAYS COURSE FOR 6 COURSES
     Route: 041
  2. TROPISETRON [Concomitant]
     Active Substance: TROPISETRON
     Indication: PROPHYLAXIS
  3. BEVACIZUMAB. [Suspect]
     Active Substance: BEVACIZUMAB
     Indication: OVARIAN CANCER
     Dosage: 1ST AND 15TH DAYS FOR 28 DAYS AS A COURSE FOR TOTAL OF 6 COURSES
     Route: 041

REACTIONS (5)
  - Epistaxis [Recovering/Resolving]
  - Nausea [Unknown]
  - Vomiting [Unknown]
  - Bone marrow failure [Unknown]
  - Embolism [Unknown]
